FAERS Safety Report 20730151 (Version 1)
Quarter: 2022Q2

REPORT INFORMATION
  Report Type: Spontaneous
  Country: NL (occurrence: None)
  Receive Date: 20220420
  Receipt Date: 20220420
  Transmission Date: 20220721
  Serious: Yes (Hospitalization)
  Sender: FDA-Public Use
  Company Number: 2022A148568

PATIENT
  Age: 66 Year
  Sex: Female

DRUGS (5)
  1. SEROQUEL [Suspect]
     Active Substance: QUETIAPINE FUMARATE
     Route: 065
  2. TRANYLCYPROMINE SULFATE [Suspect]
     Active Substance: TRANYLCYPROMINE SULFATE
     Indication: Depression
     Dosage: 2 DD 50, 40 MG
     Route: 065
     Dates: start: 20160928
  3. LORAZEPAM [Concomitant]
     Active Substance: LORAZEPAM
     Dosage: 1DD 1/2MG
  4. VALPROATE SODIUM [Concomitant]
     Active Substance: VALPROATE SODIUM
     Indication: Mental disorder
     Dosage: 2DD 450-600 MG
  5. LABETALOL [Concomitant]
     Active Substance: LABETALOL\LABETALOL HYDROCHLORIDE

REACTIONS (5)
  - Hypertensive crisis [Recovered/Resolved]
  - Prescribed overdose [Not Recovered/Not Resolved]
  - Contraindicated product administered [Unknown]
  - Therapeutic response unexpected [Unknown]
  - Food interaction [Unknown]

NARRATIVE: CASE EVENT DATE: 20171225
